FAERS Safety Report 20551209 (Version 1)
Quarter: 2022Q1

REPORT INFORMATION
  Report Type: Spontaneous
  Country: DE (occurrence: DE)
  Receive Date: 20220304
  Receipt Date: 20220304
  Transmission Date: 20220423
  Serious: Yes (Life-Threatening, Hospitalization, Other)
  Sender: FDA-Public Use
  Company Number: DE-ALKEM LABORATORIES LIMITED-DE-ALKEM-2022-01526

PATIENT
  Age: 48 Year
  Sex: Male

DRUGS (2)
  1. IBUPROFEN [Suspect]
     Active Substance: IBUPROFEN
     Indication: Pain
     Dosage: 3 MULTIPLY BY  800 MG PER DAY
     Route: 065
  2. IBUPROFEN [Suspect]
     Active Substance: IBUPROFEN
     Indication: Cardiovascular insufficiency
     Dosage: 72 GRAM
     Route: 065

REACTIONS (5)
  - Circulatory collapse [Unknown]
  - Suicidal ideation [Unknown]
  - Overdose [Unknown]
  - Coma scale abnormal [Unknown]
  - Metabolic acidosis [Unknown]
